FAERS Safety Report 5991033-2 (Version None)
Quarter: 2008Q4

REPORT INFORMATION
  Report Type: 
  Country: None (occurrence: None)
  Receive Date: 20081202
  Receipt Date: 20071019
  Transmission Date: 20090506
  Serious: Yes (Other)
  Sender: FDA-Public Use
  Company Number: WAES 0710USA03896

PATIENT
  Age: 60 Year
  Sex: Female
  Weight: 60.782 kg

DRUGS (8)
  1. FOSAMAX [Suspect]
     Indication: OSTEOPENIA
     Dosage: PO
     Route: 048
     Dates: start: 20000101, end: 20010101
  2. AMBIEN [Concomitant]
  3. LIPITOR [Concomitant]
  4. PREVACID [Concomitant]
  5. PRILOSEC [Concomitant]
  6. RESTASIS [Concomitant]
  7. CALCIUM (UNSPECIFIED) [Concomitant]
  8. SIMVASTATIN [Concomitant]

REACTIONS (2)
  - GASTROOESOPHAGEAL REFLUX DISEASE [None]
  - PALPITATIONS [None]
